FAERS Safety Report 12754818 (Version 2)
Quarter: 2016Q3

REPORT INFORMATION
  Report Type: Report from Study
  Country: CA (occurrence: CA)
  Receive Date: 20160915
  Receipt Date: 20160929
  Transmission Date: 20161109
  Serious: Yes (Other)
  Sender: FDA-Public Use
  Company Number: CA-AMGEN-CANSL2016122905

PATIENT
  Age: 62 Year
  Sex: Female

DRUGS (2)
  1. ASPIRIN. [Concomitant]
     Active Substance: ASPIRIN
     Route: 065
  2. REPATHA [Suspect]
     Active Substance: EVOLOCUMAB
     Indication: PRODUCT USED FOR UNKNOWN INDICATION
     Dosage: 140 MG/1.0 ML
     Route: 065
     Dates: start: 20160831

REACTIONS (11)
  - Ill-defined disorder [Unknown]
  - Erythema [Unknown]
  - Nausea [Unknown]
  - Dyspepsia [Unknown]
  - Sleep disorder due to a general medical condition [Unknown]
  - Rash macular [Recovered/Resolved]
  - Muscle spasms [Not Recovered/Not Resolved]
  - Groin pain [Unknown]
  - Abdominal pain upper [Unknown]
  - Vomiting [Unknown]
  - Skin plaque [Recovered/Resolved]

NARRATIVE: CASE EVENT DATE: 2016
